FAERS Safety Report 25731758 (Version 1)
Quarter: 2025Q3

REPORT INFORMATION
  Report Type: Spontaneous
  Country: US (occurrence: US)
  Receive Date: 20250827
  Receipt Date: 20250827
  Transmission Date: 20251021
  Serious: No
  Sender: RVL PHARMACEUTICALS
  Company Number: US-RVL_Pharmaceuticals-USA-ALL1255202500112

PATIENT
  Sex: Male

DRUGS (2)
  1. UPNEEQ [Suspect]
     Active Substance: OXYMETAZOLINE HYDROCHLORIDE
     Indication: Eyelid ptosis
     Dosage: OU, ONCE
     Route: 047
     Dates: start: 20250521, end: 20250521
  2. MIMOSINE [Concomitant]
     Indication: Halo vision
     Dosage: OU, HS
     Route: 047

REACTIONS (1)
  - Halo vision [Recovered/Resolved]

NARRATIVE: CASE EVENT DATE: 20250521
